FAERS Safety Report 7526585-4 (Version None)
Quarter: 2011Q2

REPORT INFORMATION
  Report Type: 
  Country: None (occurrence: None)
  Receive Date: 20110606
  Receipt Date: 20110531
  Transmission Date: 20111010
  Serious: Yes (Death, Hospitalization)
  Sender: FDA-Public Use
  Company Number: US-CELGENEUS-163-21880-11052066

PATIENT
  Sex: Female
  Weight: 56.432 kg

DRUGS (26)
  1. RED BLOOD CELLS [Concomitant]
     Dosage: 1 UNIT
     Route: 051
     Dates: start: 20110401, end: 20110401
  2. MORPHINE SULFATE [Concomitant]
     Dosage: 50 MILLIGRAM
     Route: 065
  3. COMPAZINE [Concomitant]
     Dosage: 10 MILLIGRAM
     Route: 065
  4. ASPIRIN [Concomitant]
     Dosage: 325 MILLIGRAM
     Route: 065
  5. LANTUS [Concomitant]
     Route: 065
     Dates: start: 20110429
  6. OMEPRAZOLE [Concomitant]
     Indication: PROPHYLAXIS
     Route: 065
  7. INSULIN [Concomitant]
     Dosage: SLIDING SCALE
     Route: 065
     Dates: start: 20110401
  8. TYLENOL-500 [Concomitant]
     Dosage: 500 MILLIGRAM
     Route: 065
  9. MEGACE [Concomitant]
     Route: 065
     Dates: start: 20110101
  10. RED BLOOD CELLS [Concomitant]
     Dosage: 2 UNITS
     Route: 051
     Dates: start: 20110503, end: 20110503
  11. CALCIUM WITH VITAMIN D [Concomitant]
     Route: 065
  12. MAGNESIUM SULFATE [Concomitant]
     Route: 065
     Dates: start: 20110401
  13. GLIPIZIDE [Concomitant]
     Route: 065
  14. DEXAMETHASONE [Concomitant]
     Dosage: 8 MILLIGRAM
     Route: 065
     Dates: start: 20110401
  15. DEXAMETHASONE [Concomitant]
     Dosage: 1 MILLIGRAM
     Route: 065
  16. OXYGEN [Concomitant]
     Dosage: 2 LITERS
     Route: 045
  17. SODIUM CHLORIDE [Concomitant]
     Indication: DEHYDRATION
     Dosage: .5 LITERS
     Route: 040
     Dates: start: 20110401, end: 20110401
  18. LEVAQUIN [Concomitant]
     Route: 065
  19. FLUID [Concomitant]
     Indication: DEHYDRATION
     Route: 051
     Dates: start: 20110401, end: 20110401
  20. OXYGEN [Concomitant]
     Dosage: 3.5 LITERS
     Route: 045
  21. REVLIMID [Suspect]
     Indication: MULTIPLE MYELOMA
     Dosage: 15 MILLIGRAM
     Route: 048
     Dates: start: 20110415, end: 20110502
  22. MORPHINE SULFATE [Concomitant]
     Dosage: 15 MILLIGRAM
     Route: 065
  23. OXYGEN [Concomitant]
     Dosage: 3 LITERS
     Route: 045
  24. MS CONTIN [Concomitant]
     Dosage: 30 MILLIGRAM
     Route: 065
  25. GABAPENTIN [Concomitant]
     Dosage: 300 MILLIGRAM
     Route: 065
  26. KAYEXALATE [Concomitant]
     Route: 065

REACTIONS (5)
  - RENAL FAILURE ACUTE [None]
  - DEHYDRATION [None]
  - MULTIPLE MYELOMA [None]
  - PANCYTOPENIA [None]
  - BACTERAEMIA [None]
